FAERS Safety Report 16405231 (Version 2)
Quarter: 2019Q4

REPORT INFORMATION
  Report Type: Report from Study
  Country: US (occurrence: US)
  Receive Date: 20190607
  Receipt Date: 20191001
  Transmission Date: 20200122
  Serious: No
  Sender: FDA-Public Use
  Company Number: US-009507513-1906USA002292

PATIENT
  Age: 39 Year
  Sex: Female
  Weight: 78.01 kg

DRUGS (2)
  1. IMPLANON [Suspect]
     Active Substance: ETONOGESTREL
     Dosage: 1 ROD EVERY 3 YEAR(1 DF), IN THE LEFT ARM; STRENGTH: 68 MG
     Route: 059
     Dates: start: 20190605
  2. IMPLANON [Suspect]
     Active Substance: ETONOGESTREL
     Dosage: 1 ROD EVERY 3 YEAR(1 DF), IN THE LEFT ARM; STRENGTH: 68 MG
     Route: 059
     Dates: start: 20190605, end: 20190605

REACTIONS (4)
  - Complication of device insertion [Recovered/Resolved]
  - Device expulsion [Recovered/Resolved]
  - Product quality issue [Recovered/Resolved]
  - No adverse event [Unknown]

NARRATIVE: CASE EVENT DATE: 20190605
